FAERS Safety Report 4726577-4 (Version None)
Quarter: 2005Q3

REPORT INFORMATION
  Report Type: 
  Country: None (occurrence: None)
  Receive Date: 20050727
  Receipt Date: 20050322
  Transmission Date: 20060218
  Serious: Yes (Other)
  Sender: FDA-Public Use
  Company Number: US-MERCK-0503USA04185

PATIENT
  Age: 65 Year
  Sex: Male
  Weight: 86 kg

DRUGS (8)
  1. VIOXX [Suspect]
     Indication: SPINAL OSTEOARTHRITIS
     Route: 048
     Dates: start: 20001110, end: 20040930
  2. SPIRONOLACTONE [Concomitant]
     Indication: HORMONE REPLACEMENT THERAPY
     Route: 065
     Dates: start: 19990101
  3. PACERONE [Concomitant]
     Route: 065
  4. PREVACID [Concomitant]
     Indication: GASTRIC DISORDER
     Route: 065
  5. COUMADIN [Concomitant]
     Indication: ATRIAL FIBRILLATION
     Route: 065
     Dates: start: 19990308
  6. DIOVAN [Concomitant]
     Indication: HYPERTENSION
     Route: 065
     Dates: start: 20020711
  7. AMIODARONE [Concomitant]
     Indication: HEART RATE IRREGULAR
     Route: 065
     Dates: start: 19990101
  8. ASPIRIN [Concomitant]
     Route: 065
     Dates: start: 19990308

REACTIONS (4)
  - CEREBROVASCULAR ACCIDENT [None]
  - CHRONIC OBSTRUCTIVE PULMONARY DISEASE [None]
  - RETINAL ARTERY EMBOLISM [None]
  - RETINAL ARTERY OCCLUSION [None]
